FAERS Safety Report 24195106 (Version 1)
Quarter: 2024Q3

REPORT INFORMATION
  Report Type: Spontaneous
  Country: US (occurrence: US)
  Receive Date: 20240809
  Receipt Date: 20240809
  Transmission Date: 20241017
  Serious: No
  Sender: ANI
  Company Number: US-ANIPHARMA-2024-US-029824

PATIENT
  Sex: Female

DRUGS (1)
  1. CORTICOTROPIN [Suspect]
     Active Substance: CORTICOTROPIN
     Indication: Product used for unknown indication
     Dosage: INJECT 1 ML SQ, TWICE A WEEK
     Route: 058
     Dates: start: 20240322, end: 20240514

REACTIONS (2)
  - Epistaxis [Unknown]
  - Eye haemorrhage [Unknown]
